FAERS Safety Report 8249282-9 (Version None)
Quarter: 2012Q2

REPORT INFORMATION
  Report Type: 
  Country: None (occurrence: None)
  Receive Date: 20120402
  Receipt Date: 20120323
  Transmission Date: 20120825
  Serious: Yes (Hospitalization)
  Sender: FDA-Public Use
  Company Number: US-BAYER-2012-028782

PATIENT
  Age: 21 Year
  Sex: Female

DRUGS (6)
  1. NORFLEX [Concomitant]
     Dosage: 60 MG, UNK
     Route: 030
     Dates: start: 20110222
  2. TORADOL [Concomitant]
     Dosage: 60 MG, UNK
     Route: 030
     Dates: start: 20110222
  3. MULTI-VITAMIN [Concomitant]
     Dosage: 1 TABLET DAILY
     Route: 048
  4. YAZ [Suspect]
  5. FASTIN [Concomitant]
     Dosage: 30 MG, UNK
     Route: 048
  6. VICODIN [Concomitant]
     Dosage: UNK
     Dates: start: 20110222

REACTIONS (1)
  - PULMONARY EMBOLISM [None]
